FAERS Safety Report 8875930 (Version 1)
Quarter: 2012Q4

REPORT INFORMATION
  Report Type: 
  Country: FR (occurrence: FR)
  Receive Date: 20121023
  Receipt Date: 20121023
  Transmission Date: 20130627
  Serious: Yes (Life-Threatening, Hospitalization)
  Sender: FDA-Public Use
  Company Number: FR-GLAXOSMITHKLINE-B0837407A

PATIENT
  Age: 47 Year
  Sex: Female
  Weight: 54 kg

DRUGS (2)
  1. TYVERB [Suspect]
     Indication: BREAST CANCER METASTATIC
     Route: 048
     Dates: start: 20120719, end: 20120909
  2. XELODA [Suspect]
     Indication: BREAST CANCER METASTATIC
     Dosage: 1500MG Twice per day
     Route: 048
     Dates: start: 20120719, end: 20120909

REACTIONS (18)
  - Enterocolitis haemorrhagic [Recovering/Resolving]
  - Rectal haemorrhage [Recovered/Resolved]
  - General physical health deterioration [Unknown]
  - Hypotension [Recovering/Resolving]
  - Fatigue [Unknown]
  - Diarrhoea [Recovered/Resolved]
  - Nausea [Unknown]
  - Abdominal pain [Recovering/Resolving]
  - Vomiting [Recovered/Resolved]
  - Mouth haemorrhage [Recovered/Resolved]
  - Chills [Unknown]
  - Dizziness [Unknown]
  - Hyperaesthesia [Recovering/Resolving]
  - Pyrexia [Unknown]
  - C-reactive protein increased [Unknown]
  - Presyncope [None]
  - Breast cancer metastatic [None]
  - Malignant neoplasm progression [None]
